FAERS Safety Report 7017953-8 (Version None)
Quarter: 2010Q3

REPORT INFORMATION
  Report Type: 
  Country: None (occurrence: None)
  Receive Date: 20100928
  Receipt Date: 20100920
  Transmission Date: 20110219
  Serious: Yes (Other)
  Sender: FDA-Public Use
  Company Number: US-BAYER-201031895NA

PATIENT
  Age: 40 Year
  Sex: Female

DRUGS (2)
  1. MIRENA [Suspect]
     Indication: CONTRACEPTION
     Dosage: FREQUENCY: CONTINUOUS. FIRST MIRENA PLACED ON JUL OR AUG-2005
     Route: 015
     Dates: start: 20050101
  2. MIRENA [Suspect]
     Dosage: FREQUENCY: CONTINUOUS. SECOND MIRENA PLACED ON JUN-2010
     Route: 015
     Dates: start: 20100601

REACTIONS (4)
  - ABDOMINAL PAIN [None]
  - PELVIC PAIN [None]
  - PROCEDURAL PAIN [None]
  - VAGINAL HAEMORRHAGE [None]
